FAERS Safety Report 9485982 (Version 1)
Quarter: 2013Q3

REPORT INFORMATION
  Report Type: Spontaneous
  Country: US (occurrence: None)
  Receive Date: 20130826
  Receipt Date: 20130826
  Transmission Date: 20140515
  Serious: Yes (Hospitalization, Other)
  Sender: FDA-Public Use
  Company Number: ACO_38015_2013

PATIENT
  Age: 65 Year
  Sex: Female
  Weight: 50.8 kg

DRUGS (9)
  1. AMPYRA (DALFAMPRIDINE) TABLET, 10 MG [Suspect]
     Indication: GAIT DISTURBANCE
     Route: 048
     Dates: start: 20130808, end: 20130808
  2. GILENYA (FINGLOIMOD HYDROCHLORIDE) [Concomitant]
  3. CARVEDILOL (CARVEDILOL) [Concomitant]
  4. LIPITOR (ATORVASTATIN CALCIUM) [Concomitant]
  5. RANITIDINE (RANITIDINE HYDROCHLORIDE) [Concomitant]
  6. OXYBUTYNIN (OXYBUTYNIN) [Concomitant]
  7. ESCITALOPRAM (ESCITALOPRAM) [Concomitant]
  8. VERAPAMIL (VERAPIMIL HYDROCHLORIDE) [Concomitant]
  9. OMEPRRAZOLE (OMEPRAZOLE) [Concomitant]

REACTIONS (1)
  - Convulsion [None]
